FAERS Safety Report 7372337-8 (Version None)
Quarter: 2011Q1

REPORT INFORMATION
  Report Type: 
  Country: None (occurrence: None)
  Receive Date: 20110324
  Receipt Date: 20110316
  Transmission Date: 20110831
  Serious: Yes (Disabling)
  Sender: FDA-Public Use
  Company Number: B0706798A

PATIENT
  Sex: Female
  Weight: 10.4 kg

DRUGS (6)
  1. ALKERAN [Suspect]
     Indication: STEM CELL TRANSPLANT
     Dosage: 40MGM2 PER DAY
     Route: 042
     Dates: start: 20070726, end: 20070727
  2. THIOTEPA [Suspect]
     Dosage: 200MGM2 PER DAY
     Dates: start: 20070802, end: 20070803
  3. ALKERAN [Suspect]
     Dosage: 50MGM2 PER DAY
     Route: 042
     Dates: start: 20070802, end: 20070803
  4. THIOTEPA [Suspect]
     Indication: STEM CELL TRANSPLANT
     Dosage: 150MGM2 PER DAY
     Dates: start: 20070726, end: 20070727
  5. GRAN [Concomitant]
     Dates: start: 20070812, end: 20070816
  6. SOLU-CORTEF [Concomitant]
     Dosage: 50MG PER DAY
     Dates: start: 20070802, end: 20070803

REACTIONS (4)
  - ASPARTATE AMINOTRANSFERASE INCREASED [None]
  - ALANINE AMINOTRANSFERASE INCREASED [None]
  - DIARRHOEA [None]
  - STOMATITIS [None]
